FAERS Safety Report 5883662-1 (Version None)
Quarter: 2008Q3

REPORT INFORMATION
  Report Type: 
  Country: None (occurrence: None)
  Receive Date: 20080912
  Receipt Date: 20080912
  Transmission Date: 20090109
  Serious: Yes (Other)
  Sender: FDA-Public Use
  Company Number: None

PATIENT
  Age: 42 Year
  Sex: Female
  Weight: 80.7403 kg

DRUGS (1)
  1. MIRENA [Suspect]
     Indication: CONTRACEPTION
     Dates: start: 20050201, end: 20080911

REACTIONS (6)
  - ABDOMINAL PAIN [None]
  - ACNE [None]
  - ASTHENIA [None]
  - HYPERAESTHESIA [None]
  - PAIN IN EXTREMITY [None]
  - WEIGHT INCREASED [None]
